FAERS Safety Report 21659839 (Version 2)
Quarter: 2022Q4

REPORT INFORMATION
  Report Type: Spontaneous
  Country: US (occurrence: US)
  Receive Date: 20221130
  Receipt Date: 20221227
  Transmission Date: 20230112
  Serious: Yes (Life-Threatening, Hospitalization, Other)
  Sender: FDA-Public Use
  Company Number: US-drreddys-LIT/USA/22/0157575

PATIENT
  Age: 48 Year
  Sex: Male
  Weight: 85 kg

DRUGS (5)
  1. ATORVASTATIN [Suspect]
     Active Substance: ATORVASTATIN
     Indication: Hyperlipidaemia
  2. PYRIDOXINE [Suspect]
     Active Substance: PYRIDOXINE
     Indication: Weight decreased
  3. METFORMIN [Suspect]
     Active Substance: METFORMIN HYDROCHLORIDE
     Indication: Type 2 diabetes mellitus
  4. LEVOCARNITINE [Suspect]
     Active Substance: LEVOCARNITINE
     Indication: Weight decreased
  5. THEANINE [Suspect]
     Active Substance: THEANINE
     Indication: Weight decreased

REACTIONS (5)
  - Diabetic ketoacidosis [Recovered/Resolved]
  - Overdose [Unknown]
  - Hepatic steatosis [Unknown]
  - Drug ineffective [Unknown]
  - Abdominal discomfort [Unknown]
